FAERS Safety Report 9369816 (Version 1)
Quarter: 2013Q2

REPORT INFORMATION
  Report Type: Spontaneous
  Country: JP (occurrence: JP)
  Receive Date: 20130626
  Receipt Date: 20130626
  Transmission Date: 20140414
  Serious: Yes (Hospitalization, Other)
  Sender: FDA-Public Use
  Company Number: JP-AMGEN-JPNSP2013044648

PATIENT
  Sex: Female

DRUGS (2)
  1. ENBREL [Suspect]
     Indication: RHEUMATOID ARTHRITIS
     Dosage: 25 MG, 1X/2WEEK
     Route: 058
     Dates: start: 2010, end: 2012
  2. ENBREL [Suspect]
     Dosage: 50 MG, UNK
     Route: 058
     Dates: start: 2012

REACTIONS (1)
  - Polyneuropathy [Unknown]
